FAERS Safety Report 5396774-6 (Version None)
Quarter: 2007Q3

REPORT INFORMATION
  Report Type: 
  Country: None (occurrence: None)
  Receive Date: 20070725
  Receipt Date: 20070717
  Transmission Date: 20080115
  Serious: Yes (Other)
  Sender: FDA-Public Use
  Company Number: NL-ROCHE-507481

PATIENT
  Age: 52 Year
  Sex: Female
  Weight: 71 kg

DRUGS (2)
  1. PEGASYS [Suspect]
     Indication: HEPATITIS C VIRUS
     Dosage: ROUTE REPORTED AS INJECTION.
     Route: 050
     Dates: start: 20050712
  2. REBETOL [Concomitant]
     Indication: HEPATITIS C VIRUS
     Route: 048
     Dates: start: 20050712

REACTIONS (1)
  - MALIGNANT MELANOMA [None]
